FAERS Safety Report 10716374 (Version 1)
Quarter: 2015Q1

REPORT INFORMATION
  Report Type: Spontaneous
  Country: JP (occurrence: JP)
  Receive Date: 20150116
  Receipt Date: 20150116
  Transmission Date: 20150721
  Serious: Yes (Other)
  Sender: FDA-Public Use
  Company Number: JP-MYLANLABS-2015M1000364

PATIENT

DRUGS (5)
  1. CARBOPLATIN INJECTION 50 MG ^NK^ [Suspect]
     Active Substance: CARBOPLATIN
     Indication: OVARIAN CANCER STAGE III
     Dosage: 8COURSE
     Route: 042
  2. IRINOTECAN HYDROCHLORIDE INJECTION 100? ^NK^ [Suspect]
     Active Substance: IRINOTECAN HYDROCHLORIDE
     Indication: METASTATIC NEOPLASM
     Dosage: 7COURSE
     Route: 042
  3. PACLITAXEL. [Suspect]
     Active Substance: PACLITAXEL
     Indication: OVARIAN CANCER STAGE III
     Dosage: 8COURSE
     Route: 042
  4. DOXORUBICIN [Suspect]
     Active Substance: DOXORUBICIN
     Indication: DISEASE PROGRESSION
     Dosage: 4COURSE
     Route: 042
  5. DOXORUBICIN [Suspect]
     Active Substance: DOXORUBICIN
     Indication: METASTATIC NEOPLASM

REACTIONS (4)
  - Ovarian cancer [None]
  - Myelodysplastic syndrome [Not Recovered/Not Resolved]
  - Disease progression [Unknown]
  - Drug ineffective [None]
